FAERS Safety Report 6972547-5 (Version None)
Quarter: 2010Q3

REPORT INFORMATION
  Report Type: 
  Country: None (occurrence: None)
  Receive Date: 20100907
  Receipt Date: 20100902
  Transmission Date: 20110219
  Serious: Yes (Other)
  Sender: FDA-Public Use
  Company Number: TIR-00212

PATIENT
  Age: 43 Year
  Sex: Female
  Weight: 124.3 kg

DRUGS (22)
  1. LEVOTHYROXINE SODIUM [Suspect]
     Indication: THYROID DISORDER
     Dosage: ORAL, 50 UG DAILY
     Route: 048
  2. PROPRANOLOL [Suspect]
     Indication: BLOOD PRESSURE
     Dosage: ORAL, 20 MG TWICE DAILY
  3. LISINOPRIL [Suspect]
     Indication: BLOOD PRESSURE
     Dosage: ORAL, 10 MG DAILY
     Route: 048
  4. OMEPRAZOLE [Suspect]
     Indication: GASTROOESOPHAGEAL REFLUX DISEASE
     Dosage: ORAL, 40 MG DAILY
     Route: 048
  5. LIDODERM [Suspect]
     Indication: MYALGIA
     Dosage: 3 TRANSDERMAL PATCHES (12 HOURS ON, 12 HOURS OFF)
     Route: 062
  6. LYRICA [Suspect]
     Indication: FIBROMYALGIA
     Dosage: ORAL, 150 MG TID/ 150MG QID
     Route: 048
  7. FLUTICASONE PROPIONATE [Suspect]
     Dosage: NASAL SPRAY
     Route: 045
     Dates: start: 20100101
  8. SIMVASTATIN [Suspect]
     Indication: BLOOD CHOLESTEROL
     Dosage: ORAL, 40 MG DAILY
     Route: 048
  9. MELOXICAM [Suspect]
     Indication: PAIN
     Dosage: ORAL, 15 MG BID
     Route: 048
  10. CETRIZINE (CETIRIZINE HYDROCHLORIDE) [Suspect]
     Indication: HYPERSENSITIVITY
     Dosage: ORAL, 10 MG DAILY
     Route: 048
  11. ACETYLSALICYLIC ACID [Suspect]
     Dosage: ORAL, 81 MG DAILY
     Route: 048
  12. TEGRETOL [Suspect]
     Indication: PERSONALITY DISORDER
     Dosage: 400MG QAM, 800 MG HS
  13. PROVIGIL [Suspect]
     Indication: FATIGUE
     Dosage: ORAL, 200 MG DAILY / ONE AND A HALF TABLETS DAILY
     Route: 048
  14. PROVIGIL [Suspect]
     Indication: SLEEP APNOEA SYNDROME
     Dosage: ORAL, 200 MG DAILY / ONE AND A HALF TABLETS DAILY
     Route: 048
  15. METHOCARBAMOL [Suspect]
     Indication: PAIN
     Dosage: ORAL, 500 MG BID
     Route: 048
  16. BACLOFEN [Suspect]
     Indication: RESTLESS LEGS SYNDROME
     Dosage: ORAL, 20 MG TID
     Route: 048
  17. METHADOSE [Suspect]
     Indication: PAIN
     Dosage: ORAL, 10 MG PID
     Route: 048
  18. CYMBALTA [Suspect]
     Indication: DEPRESSION
     Dosage: ORAL, 60 MG BID
     Route: 048
  19. INSULIN (DETEMIR) [Suspect]
     Indication: DIABETES MELLITUS
     Dosage: SUBCUTANEOUS INJECTION, 47 IU QAM / 47 IU HS
     Route: 058
  20. MIRALAX [Suspect]
     Indication: CONSTIPATION
     Dosage: ORAL, 17 G DAILY
     Route: 048
  21. FISH OIL [Suspect]
  22. VITAMIN E [Suspect]

REACTIONS (3)
  - CONDITION AGGRAVATED [None]
  - CONVULSION [None]
  - FIBROMYALGIA [None]
